FAERS Safety Report 6823802-0 (Version None)
Quarter: 2010Q3

REPORT INFORMATION
  Report Type: 
  Country: None (occurrence: None)
  Receive Date: 20100708
  Receipt Date: 20061125
  Transmission Date: 20110219
  Serious: No
  Sender: FDA-Public Use
  Company Number: US-PFIZER INC-2006097590

PATIENT
  Sex: Female
  Weight: 42.18 kg

DRUGS (5)
  1. CHANTIX [Suspect]
     Indication: SMOKING CESSATION THERAPY
     Dates: start: 20060806
  2. CRESTOR [Concomitant]
  3. SPIRIVA [Concomitant]
  4. MIACALCIN [Concomitant]
     Route: 055
  5. XOPENEX [Concomitant]
     Route: 055

REACTIONS (7)
  - DYSGEUSIA [None]
  - DYSPEPSIA [None]
  - FEELING ABNORMAL [None]
  - HEADACHE [None]
  - INSOMNIA [None]
  - NAUSEA [None]
  - POLLAKIURIA [None]
